FAERS Safety Report 17365300 (Version 1)
Quarter: 2020Q1

REPORT INFORMATION
  Report Type: Report from Study
  Country: None (occurrence: US)
  Receive Date: 20200204
  Receipt Date: 20200204
  Transmission Date: 20200409
  Serious: Yes (Other)
  Sender: FDA-Public Use
  Company Number: US-ABBVIE-20K-163-3256148-00

PATIENT
  Age: 58 Year
  Sex: Female

DRUGS (1)
  1. HUMIRA [Suspect]
     Active Substance: ADALIMUMAB
     Indication: CROHN^S DISEASE
     Dosage: CITRATE FREE
     Route: 058
     Dates: end: 20190920

REACTIONS (9)
  - Impaired work ability [Unknown]
  - Herpes zoster [Unknown]
  - Psoriasis [Unknown]
  - Fungal skin infection [Unknown]
  - Systemic lupus erythematosus [Unknown]
  - Dermatitis [Unknown]
  - Crying [Unknown]
  - Drug ineffective [Unknown]
  - Emotional distress [Unknown]

NARRATIVE: CASE EVENT DATE: 201909
